FAERS Safety Report 15675984 (Version 1)
Quarter: 2018Q4

REPORT INFORMATION
  Report Type: Spontaneous
  Country: US (occurrence: US)
  Receive Date: 20181130
  Receipt Date: 20181130
  Transmission Date: 20190205
  Serious: Yes (Other)
  Sender: FDA-Public Use
  Company Number: US-PFIZER INC-2018482067

PATIENT
  Age: 62 Year
  Sex: Male
  Weight: 120.2 kg

DRUGS (1)
  1. GABAPENTIN. [Suspect]
     Active Substance: GABAPENTIN
     Indication: NEURALGIA
     Dosage: 600 MG, 3X/DAY
     Route: 048
     Dates: start: 2013, end: 201811

REACTIONS (1)
  - Drug ineffective for unapproved indication [Recovered/Resolved with Sequelae]

NARRATIVE: CASE EVENT DATE: 201803
